FAERS Safety Report 24190304 (Version 1)
Quarter: 2024Q3

REPORT INFORMATION
  Report Type: Spontaneous
  Country: IT (occurrence: IT)
  Receive Date: 20240808
  Receipt Date: 20240808
  Transmission Date: 20241016
  Serious: Yes (Hospitalization, Other)
  Sender: RANBAXY
  Company Number: None

PATIENT
  Age: 51 Year
  Sex: Female

DRUGS (21)
  1. BORTEZOMIB [Suspect]
     Active Substance: BORTEZOMIB
     Indication: Plasma cell myeloma
     Dosage: 4 INDUCTION CYCLES ALONG WITH CYCLOPHOSPHAMIDE AND DEXAMETHASONE
     Route: 065
  2. BORTEZOMIB [Suspect]
     Active Substance: BORTEZOMIB
     Dosage: TWO CONSOLIDATION CYCLES ALONG WITH LENALIDOMIDE AND DEXAMETHASONE
     Route: 065
  3. LENALIDOMIDE [Suspect]
     Active Substance: LENALIDOMIDE
     Indication: Plasma cell myeloma
     Dosage: MAINTENANCE THERAPY
     Route: 065
  4. LENALIDOMIDE [Suspect]
     Active Substance: LENALIDOMIDE
     Dosage: TWO CONSOLIDATION CYCLES ALONG WITH BORTEZOMIB AND DEXAMETHASONE
     Route: 065
  5. LENALIDOMIDE [Suspect]
     Active Substance: LENALIDOMIDE
     Dosage: THIRD LINE THERAPY ALONG WITH DARATUMUMAB AND DEXAMETHASONE
     Route: 065
  6. DARATUMUMAB [Suspect]
     Active Substance: DARATUMUMAB
     Indication: Plasma cell myeloma
     Dosage: THIRD LINE THERAPY ALONG WITH LENALIDOMIDE AND DEXAMETHASONE
     Route: 065
  7. DEXAMETHASONE [Suspect]
     Active Substance: DEXAMETHASONE
     Indication: Plasma cell myeloma
     Dosage: 4 INDUCTION CYCLES ALONG WITH BORTEZOMIB AND CYCLOPHOSPHAMIDE
     Route: 065
  8. DEXAMETHASONE [Suspect]
     Active Substance: DEXAMETHASONE
     Dosage: 4 INDUCTION CYCLES ALONG WITH BORTEZOMIB AND CYCLOPHOSPHAMIDE
     Route: 065
  9. DEXAMETHASONE [Suspect]
     Active Substance: DEXAMETHASONE
     Dosage: THIRD LINE THERAPY ALONG WITH DARATUMUMAB AND LENALIDOMIDE
     Route: 065
  10. DEXAMETHASONE [Suspect]
     Active Substance: DEXAMETHASONE
     Dosage: TWO CONSOLIDATION CYCLES ALONG WITH BORTEZOMIB AND LENALIDOMIDE
     Route: 065
  11. DEXAMETHASONE [Suspect]
     Active Substance: DEXAMETHASONE
     Dosage: 8 CYCLES OF INDUCTION THERAPY ALONG WITH CARFILZOMIB AND POMALIDOMIDE
     Route: 065
  12. TOCILIZUMAB [Suspect]
     Active Substance: TOCILIZUMAB
     Indication: Cytokine release syndrome
     Route: 065
  13. CYCLOPHOSPHAMIDE [Suspect]
     Active Substance: CYCLOPHOSPHAMIDE
     Indication: Plasma cell myeloma
     Dosage: 4 INDUCTION CYCLES ALONG WITH BORTEZOMIB AND DEXAMETHASONE
     Route: 065
  14. POMALIDOMIDE [Suspect]
     Active Substance: POMALIDOMIDE
     Indication: Plasma cell myeloma
     Dosage: 8 CYCLES OF INDUCTION THERAPY ALONG WITH CARFILZOMIB AND DEXAMETHASONE
     Route: 065
     Dates: start: 2020
  15. POMALIDOMIDE [Suspect]
     Active Substance: POMALIDOMIDE
     Dosage: MAINTENANCE THERAPY
     Route: 065
     Dates: start: 2020
  16. CARFILZOMIB [Suspect]
     Active Substance: CARFILZOMIB
     Indication: Plasma cell myeloma
     Dosage: 8 CYCLES OF INDUCTION THERAPY ALONG WITH POMALIDOMIDE AND DEXAMETHASONE
     Route: 065
     Dates: start: 2020
  17. CILGAVIMAB\TIXAGEVIMAB [Concomitant]
     Active Substance: CILGAVIMAB\TIXAGEVIMAB
     Indication: COVID-19
     Route: 065
     Dates: start: 2022
  18. MOLNUPIRAVIR [Concomitant]
     Active Substance: MOLNUPIRAVIR
     Indication: COVID-19
     Route: 065
     Dates: start: 2022
  19. HUMAN IMMUNOGLOBULIN G [Concomitant]
     Active Substance: HUMAN IMMUNOGLOBULIN G
     Indication: Product used for unknown indication
     Dosage: 400 MILLIGRAM/KILOGRAM, Q3WK
     Route: 040
     Dates: start: 2022, end: 202304
  20. REMDESIVIR [Concomitant]
     Active Substance: REMDESIVIR
     Indication: COVID-19
     Route: 065
     Dates: start: 2022
  21. TOZINAMERAN [Concomitant]
     Active Substance: TOZINAMERAN
     Indication: COVID-19 immunisation
     Dosage: THREE DOSES
     Route: 065
     Dates: end: 202203

REACTIONS (11)
  - Normocytic anaemia [Unknown]
  - Natural killer cell count decreased [Unknown]
  - Cytokine release syndrome [Recovered/Resolved]
  - Bronchopulmonary aspergillosis [Recovered/Resolved]
  - Respiratory failure [Recovering/Resolving]
  - COVID-19 pneumonia [Recovered/Resolved]
  - Lymphocyte count decreased [Unknown]
  - Off label use [Unknown]
  - B-cell aplasia [Unknown]
  - Pulmonary embolism [Recovering/Resolving]
  - COVID-19 [Recovered/Resolved]

NARRATIVE: CASE EVENT DATE: 20200101
